FAERS Safety Report 5631503-X (Version None)
Quarter: 2008Q1

REPORT INFORMATION
  Report Type: 
  Country: None (occurrence: None)
  Receive Date: 20080211
  Receipt Date: 20080124
  Transmission Date: 20080703
  Serious: Yes (Hospitalization)
  Sender: FDA-Public Use
  Company Number: TRP_01037_2008

PATIENT
  Sex: Male

DRUGS (17)
  1. INFERGEN/INTERFERON ALFACON-1/THREE RIVERS PHARMA [Suspect]
     Indication: HEPATITIS C
     Dosage: 15 UG QD SUBCUTANEOUS
     Route: 058
     Dates: start: 20071204, end: 20080123
  2. RIBAVIRIN [Suspect]
     Indication: HEPATITIS C
     Dosage: 400 MG BID ORAL
     Route: 048
     Dates: start: 20071204, end: 20080123
  3. ARANESP [Concomitant]
  4. CARAFATE [Concomitant]
  5. NEXIUM [Concomitant]
  6. REGLAN [Concomitant]
  7. CELEXA [Concomitant]
  8. ALLOPURINOL [Concomitant]
  9. PIROXICAM [Concomitant]
  10. METHADONE HCL [Concomitant]
  11. XANAX [Concomitant]
  12. PHENERGAN HCL [Concomitant]
  13. VITAMIN AND MINERAL PRENATAL SUPPLEMENT W/ FOLIC ACID CAP [Concomitant]
  14. ECHINACEA [Concomitant]
  15. ESTER C [Concomitant]
  16. VITAMIN D [Concomitant]
  17. CASCARA TAB [Concomitant]

REACTIONS (6)
  - DECREASED APPETITE [None]
  - DEHYDRATION [None]
  - INJECTION SITE PAIN [None]
  - NAUSEA [None]
  - RED BLOOD CELL COUNT DECREASED [None]
  - VOMITING [None]
